FAERS Safety Report 22200875 (Version 1)
Quarter: 2023Q2

REPORT INFORMATION
  Report Type: Spontaneous
  Country: DE (occurrence: DE)
  Receive Date: 20230412
  Receipt Date: 20230412
  Transmission Date: 20230721
  Serious: Yes (Death, Other)
  Sender: FDA-Public Use
  Company Number: DE-DCGMA-23200708

PATIENT
  Age: 81 Year
  Sex: Male
  Weight: 80 kg

DRUGS (5)
  1. CARVEDILOL [Suspect]
     Active Substance: CARVEDILOL
     Indication: Portal hypertension
     Dosage: 25 MILLIGRAM, ONCE A DAY,(12.5 MG 1-0-1)
     Route: 048
  2. AMLODIPINE BESYLATE [Concomitant]
     Active Substance: AMLODIPINE BESYLATE
     Indication: Product used for unknown indication
     Dosage: 5 MILLIGRAM, ONCE A DAY
     Route: 048
  3. CANDESARTAN [Concomitant]
     Active Substance: CANDESARTAN
     Indication: Product used for unknown indication
     Dosage: 16 MILLIGRAM, ONCE A DAY
     Route: 048
  4. HYDROCHLOROTHIAZIDE [Concomitant]
     Active Substance: HYDROCHLOROTHIAZIDE
     Indication: Product used for unknown indication
     Dosage: 12.5 MILLIGRAM, ONCE A DAY
     Route: 048
  5. SIMVASTATIN [Concomitant]
     Active Substance: SIMVASTATIN
     Indication: Hyperlipidaemia
     Dosage: 10 MILLIGRAM, ONCE A DAY
     Route: 048

REACTIONS (8)
  - Acute kidney injury [Fatal]
  - Hypothermia [Fatal]
  - Syncope [Fatal]
  - Hypoglycaemia [Fatal]
  - Pancreatitis [Fatal]
  - Cardiac failure [Fatal]
  - Bradycardia [Fatal]
  - Disturbance in attention [Fatal]

NARRATIVE: CASE EVENT DATE: 20230304
